FAERS Safety Report 21033741 (Version 6)
Quarter: 2023Q2

REPORT INFORMATION
  Report Type: Spontaneous
  Country: FR (occurrence: FR)
  Receive Date: 20220701
  Receipt Date: 20230419
  Transmission Date: 20230722
  Serious: Yes (Hospitalization, Other)
  Sender: FDA-Public Use
  Company Number: None

PATIENT
  Age: 56 Year
  Sex: Male
  Weight: 75.6 kg

DRUGS (30)
  1. ACETAMINOPHEN [Suspect]
     Active Substance: ACETAMINOPHEN
     Indication: Product used for unknown indication
     Dosage: UNK (PRN IF NECESSARY)
     Route: 048
     Dates: start: 2021
  2. MYCOPHENOLATE MOFETIL [Suspect]
     Active Substance: MYCOPHENOLATE MOFETIL
     Indication: Prophylaxis against transplant rejection
     Dosage: 500 MILLIGRAM, BID (500 MILLIGRAM, TWO TIMES A DAY
     Route: 048
     Dates: start: 20220125, end: 20220503
  3. DARBEPOETIN ALFA [Suspect]
     Active Substance: DARBEPOETIN ALFA
     Indication: Anaemia
     Dosage: 300 MICROGRAM, QW (SOLUTION FOR INJECTION IN PRE-FILLED SYRINGE)
     Route: 058
     Dates: start: 20220125
  4. MYCOPHENOLATE MOFETIL [Suspect]
     Active Substance: MYCOPHENOLATE MOFETIL
     Indication: Prophylaxis against transplant rejection
     Dosage: 1000 MILLIGRAM, QD (1000 MILLIGRAM, QD, 500 MILLIGRAM, TWO TIMES A DAY)
     Route: 048
     Dates: start: 20220125, end: 20220503
  5. FUROSEMIDE [Suspect]
     Active Substance: FUROSEMIDE
     Indication: Product used for unknown indication
     Dosage: 40 MILLIGRAM, QD  (40 MILLIGRAM, ONCE A DAY)
     Route: 048
     Dates: start: 20211220
  6. AMLODIPINE BESYLATE [Suspect]
     Active Substance: AMLODIPINE BESYLATE
     Indication: Hypertension
     Dosage: 5 MILLIGRAM, QD (5 MG 1X/DAY)
     Route: 048
     Dates: start: 20220125, end: 202205
  7. CALCIUM CARBONATE [Suspect]
     Active Substance: CALCIUM CARBONATE
     Indication: Vitamin supplementation
     Dosage: 2 DOSAGE FORM, QD
     Route: 048
     Dates: start: 20220125
  8. FLUDARABINE [Suspect]
     Active Substance: FLUDARABINE PHOSPHATE
     Indication: Product used for unknown indication
     Dosage: UNK
     Route: 065
  9. CALCIUM CARBONATE\CHOLECALCIFEROL [Suspect]
     Active Substance: CALCIUM CARBONATE\CHOLECALCIFEROL
     Dosage: 2 DOSAGE FORM, QD (2 DOSAGE FORM, ONCE A DAY)
     Route: 048
     Dates: start: 20220125
  10. ESOMEPRAZOLE [Suspect]
     Active Substance: ESOMEPRAZOLE
     Indication: Prophylaxis against gastrointestinal ulcer
     Dosage: 40 MILLIGRAM, QD
     Route: 048
     Dates: start: 20220125
  11. PREDNISONE [Suspect]
     Active Substance: PREDNISONE
     Indication: Prophylaxis against transplant rejection
     Dosage: 30 MILLIGRAM, QD (30 MILLIGRAM, ONCE A DAY)
     Route: 048
     Dates: start: 20211229
  12. ESOMEPRAZOLE [Suspect]
     Active Substance: ESOMEPRAZOLE
     Indication: Prophylaxis against gastrointestinal ulcer
     Dosage: 40 MILLIGRAM, QD  (40 MILLIGRAM, ONCE A DAY)
     Route: 048
     Dates: start: 20220125
  13. FILGRASTIM [Suspect]
     Active Substance: FILGRASTIM
     Indication: Neutropenia
     Dosage: UNK (30 10 6.IU CYCLIC (5 TIMES A WEEK))
     Route: 042
     Dates: start: 20211220
  14. FILGRASTIM [Suspect]
     Active Substance: FILGRASTIM
     Dosage: UNK (30 10 6.IU CYCLIC (5 TIMES A WEEK))
     Route: 042
     Dates: start: 20211220
  15. BACTRIM [Suspect]
     Active Substance: SULFAMETHOXAZOLE\TRIMETHOPRIM
     Indication: Opportunistic infection prophylaxis
     Dosage: UNK (400/80MG TWICE A WEEK)
     Route: 048
     Dates: start: 20211221
  16. CALCIUM CARBONATE\CHOLECALCIFEROL [Suspect]
     Active Substance: CALCIUM CARBONATE\CHOLECALCIFEROL
     Indication: Vitamin supplementation
     Dosage: 2 DOSAGE FORM, QD  (2 DOSAGE FORM, ONCE A DAY)
     Route: 048
     Dates: start: 20220125
  17. PREVYMIS [Suspect]
     Active Substance: LETERMOVIR
     Indication: Antiviral prophylaxis
     Dosage: 480 MILLIGRAM, QD
     Route: 048
     Dates: start: 20211220
  18. URSODIOL [Suspect]
     Active Substance: URSODIOL
     Indication: Product used for unknown indication
     Dosage: 250 MILLIGRAM, BID (250 MILLIGRAM,(EVERY 12 HRS)
     Route: 048
     Dates: start: 20211220
  19. VALACYCLOVIR HYDROCHLORIDE [Suspect]
     Active Substance: VALACYCLOVIR HYDROCHLORIDE
     Indication: Antiviral prophylaxis
     Dosage: 500 MILLIGRAM, BID (500 MILLIGRAM, (EVERY 12 HRS)
     Route: 048
     Dates: start: 2021
  20. NOXAFIL [Suspect]
     Active Substance: POSACONAZOLE
     Indication: Antifungal prophylaxis
     Dosage: 300 MILLIGRAM, QD (300 MILLIGRAM, ONCE A DAY)
     Route: 048
     Dates: start: 2021
  21. ELTROMBOPAG OLAMINE [Suspect]
     Active Substance: ELTROMBOPAG OLAMINE
     Indication: Thrombocytopenia
     Dosage: 150 MILLIGRAM, QD
     Route: 048
     Dates: start: 20220125
  22. ELTROMBOPAG OLAMINE [Suspect]
     Active Substance: ELTROMBOPAG OLAMINE
     Dosage: 225 MILLIGRAM, QD
     Route: 048
     Dates: start: 20220510
  23. ELTROMBOPAG OLAMINE [Suspect]
     Active Substance: ELTROMBOPAG OLAMINE
     Dosage: 225 MILLIGRAM, QD (225 MILLIGRAM, ONCE A DAY)
     Route: 048
     Dates: start: 20220122
  24. ELTROMBOPAG OLAMINE [Suspect]
     Active Substance: ELTROMBOPAG OLAMINE
     Dosage: 225 MILLIGRAM, QD (150 MG PER DAY ON 01/25/2022 INCREASED TO 225 MG)
     Route: 048
     Dates: start: 20220125
  25. LEUCOVORIN CALCIUM [Suspect]
     Active Substance: LEUCOVORIN CALCIUM
     Indication: Haematotoxicity
     Dosage: 525 MILLIGRAM, QD (525 MILLIGRAM, ONCE A DAY)
     Route: 048
     Dates: start: 20220125
  26. FUNGIZONE [Suspect]
     Active Substance: AMPHOTERICIN B
     Indication: Product used for unknown indication
     Dosage: UNK (3 MOUTHWASHES PER DAY)
     Route: 048
     Dates: start: 20211220
  27. AMPHOTERICIN B [Suspect]
     Active Substance: AMPHOTERICIN B
     Indication: Product used for unknown indication
     Dosage: UNK
     Route: 048
     Dates: start: 20211204
  28. CYCLOPHOSPHAMIDE [Concomitant]
     Active Substance: CYCLOPHOSPHAMIDE
     Indication: Product used for unknown indication
     Dosage: UNK
     Route: 065
  29. SALICYLIC ACID [Concomitant]
     Active Substance: SALICYLIC ACID
     Indication: Product used for unknown indication
     Dosage: UNK
     Route: 065
  30. FLUDARABINE [Concomitant]
     Active Substance: FLUDARABINE PHOSPHATE
     Indication: Product used for unknown indication
     Dosage: UNK
     Route: 065

REACTIONS (4)
  - Condition aggravated [Not Recovered/Not Resolved]
  - Renal failure [Not Recovered/Not Resolved]
  - Acute kidney injury [Not Recovered/Not Resolved]
  - Overdose [Unknown]
